FAERS Safety Report 5117308-7 (Version None)
Quarter: 2006Q3

REPORT INFORMATION
  Report Type: 
  Country: None (occurrence: None)
  Receive Date: 20060927
  Receipt Date: 20060927
  Transmission Date: 20061208
  Serious: Yes (Hospitalization)
  Sender: FDA-Public Use
  Company Number: None

PATIENT
  Age: 76 Year
  Sex: Female
  Weight: 78.47 kg

DRUGS (1)
  1. CYMBALTA [Suspect]
     Dosage: 30 MG DAILY ORAL
     Route: 048
     Dates: start: 20060914, end: 20060919

REACTIONS (16)
  - ANXIETY [None]
  - ASTHENIA [None]
  - CATHETER RELATED INFECTION [None]
  - DECREASED APPETITE [None]
  - DIZZINESS [None]
  - FATIGUE [None]
  - GENERAL PHYSICAL HEALTH DETERIORATION [None]
  - HYPERHIDROSIS [None]
  - MUSCLE SPASMS [None]
  - NAUSEA [None]
  - SOMNOLENCE [None]
  - THINKING ABNORMAL [None]
  - URINARY RETENTION [None]
  - URINARY TRACT INFECTION [None]
  - URINARY TRACT OBSTRUCTION [None]
  - VISION BLURRED [None]
